FAERS Safety Report 24783979 (Version 1)
Quarter: 2024Q4

REPORT INFORMATION
  Report Type: Report from Study
  Country: JP (occurrence: JP)
  Receive Date: 20241227
  Receipt Date: 20241227
  Transmission Date: 20250115
  Serious: Yes (Other)
  Sender: ALEXION PHARMACEUTICALS
  Company Number: JP-ASTRAZENECA-230007951_011820_P_1

PATIENT
  Age: 15 Year

DRUGS (40)
  1. KOSELUGO [Suspect]
     Active Substance: SELUMETINIB
     Indication: Neurofibroma
     Dosage: 30 MILLIGRAM, BID
  2. KOSELUGO [Suspect]
     Active Substance: SELUMETINIB
     Dosage: 30 MILLIGRAM, BID
     Route: 048
  3. KOSELUGO [Suspect]
     Active Substance: SELUMETINIB
     Dosage: 30 MILLIGRAM, BID
  4. KOSELUGO [Suspect]
     Active Substance: SELUMETINIB
     Dosage: 30 MILLIGRAM, BID
     Route: 048
  5. KOSELUGO [Suspect]
     Active Substance: SELUMETINIB
     Dosage: 10 MILLIGRAM, BID
     Route: 048
  6. KOSELUGO [Suspect]
     Active Substance: SELUMETINIB
     Dosage: 10 MILLIGRAM, BID
  7. KOSELUGO [Suspect]
     Active Substance: SELUMETINIB
     Dosage: 10 MILLIGRAM, BID
     Route: 048
  8. KOSELUGO [Suspect]
     Active Substance: SELUMETINIB
     Dosage: 10 MILLIGRAM, BID
  9. KOSELUGO [Suspect]
     Active Substance: SELUMETINIB
     Dosage: 20 MILLIGRAM, BID
     Route: 048
  10. KOSELUGO [Suspect]
     Active Substance: SELUMETINIB
     Dosage: 20 MILLIGRAM, BID
  11. KOSELUGO [Suspect]
     Active Substance: SELUMETINIB
     Dosage: 20 MILLIGRAM, BID
  12. KOSELUGO [Suspect]
     Active Substance: SELUMETINIB
     Dosage: 20 MILLIGRAM, BID
     Route: 048
  13. KOSELUGO [Suspect]
     Active Substance: SELUMETINIB
     Dosage: 20 MILLIGRAM, BID
  14. KOSELUGO [Suspect]
     Active Substance: SELUMETINIB
     Dosage: 20 MILLIGRAM, BID
     Route: 048
  15. KOSELUGO [Suspect]
     Active Substance: SELUMETINIB
     Dosage: 20 MILLIGRAM, BID
  16. KOSELUGO [Suspect]
     Active Substance: SELUMETINIB
     Dosage: 20 MILLIGRAM, BID
     Route: 048
  17. KOSELUGO [Suspect]
     Active Substance: SELUMETINIB
     Dosage: 20 MILLIGRAM, BID
     Route: 048
  18. KOSELUGO [Suspect]
     Active Substance: SELUMETINIB
     Dosage: 20 MILLIGRAM, BID
  19. KOSELUGO [Suspect]
     Active Substance: SELUMETINIB
     Dosage: 20 MILLIGRAM, BID
     Route: 048
  20. KOSELUGO [Suspect]
     Active Substance: SELUMETINIB
     Dosage: 20 MILLIGRAM, BID
  21. KOSELUGO [Suspect]
     Active Substance: SELUMETINIB
     Dosage: 20 MILLIGRAM, BID
     Route: 048
  22. KOSELUGO [Suspect]
     Active Substance: SELUMETINIB
     Dosage: 20 MILLIGRAM, BID
  23. KOSELUGO [Suspect]
     Active Substance: SELUMETINIB
     Dosage: 20 MILLIGRAM, BID
  24. KOSELUGO [Suspect]
     Active Substance: SELUMETINIB
     Dosage: 20 MILLIGRAM, BID
     Route: 048
  25. KOSELUGO [Suspect]
     Active Substance: SELUMETINIB
     Dosage: 20 MILLIGRAM, BID
     Route: 048
  26. KOSELUGO [Suspect]
     Active Substance: SELUMETINIB
     Dosage: 20 MILLIGRAM, BID
  27. KOSELUGO [Suspect]
     Active Substance: SELUMETINIB
     Dosage: 20 MILLIGRAM, BID
  28. KOSELUGO [Suspect]
     Active Substance: SELUMETINIB
     Dosage: 20 MILLIGRAM, BID
     Route: 048
  29. KOSELUGO [Suspect]
     Active Substance: SELUMETINIB
     Dosage: 20 MILLIGRAM, BID
     Route: 048
  30. KOSELUGO [Suspect]
     Active Substance: SELUMETINIB
     Dosage: 20 MILLIGRAM, BID
  31. KOSELUGO [Suspect]
     Active Substance: SELUMETINIB
     Dosage: 20 MILLIGRAM, BID
  32. KOSELUGO [Suspect]
     Active Substance: SELUMETINIB
     Dosage: 20 MILLIGRAM, BID
     Route: 048
  33. KOSELUGO [Suspect]
     Active Substance: SELUMETINIB
     Dosage: 30 MILLIGRAM, BID
  34. KOSELUGO [Suspect]
     Active Substance: SELUMETINIB
     Dosage: 30 MILLIGRAM, BID
     Route: 048
  35. KOSELUGO [Suspect]
     Active Substance: SELUMETINIB
     Dosage: 30 MILLIGRAM, BID
  36. KOSELUGO [Suspect]
     Active Substance: SELUMETINIB
     Dosage: 30 MILLIGRAM, BID
     Route: 048
  37. BENZOYL PEROXIDE [Concomitant]
     Active Substance: BENZOYL PEROXIDE
     Dosage: UNK
     Route: 062
  38. BENZOYL PEROXIDE [Concomitant]
     Active Substance: BENZOYL PEROXIDE
     Dosage: UNK
  39. NADIFLOXACIN [Concomitant]
     Active Substance: NADIFLOXACIN
     Dosage: UNK
     Route: 062
  40. NADIFLOXACIN [Concomitant]
     Active Substance: NADIFLOXACIN
     Dosage: UNK

REACTIONS (7)
  - Drug-induced liver injury [Recovered/Resolved]
  - Abdominal pain [Recovered/Resolved]
  - Hand dermatitis [Recovered/Resolved]
  - Vomiting [Recovered/Resolved]
  - Chalazion [Unknown]
  - Paronychia [Unknown]
  - Dermatitis acneiform [Unknown]
